FAERS Safety Report 17373078 (Version 1)
Quarter: 2020Q1

REPORT INFORMATION
  Report Type: Spontaneous
  Country: US (occurrence: US)
  Receive Date: 20200205
  Receipt Date: 20200205
  Transmission Date: 20200409
  Serious: Yes (Other)
  Sender: FDA-Public Use
  Company Number: US-TEVA-2020-US-1179116

PATIENT
  Sex: Male
  Weight: 71.67 kg

DRUGS (2)
  1. CARBIDOPA AND LEVODOPA [Suspect]
     Active Substance: CARBIDOPA\LEVODOPA
     Indication: PARKINSON^S DISEASE
     Dosage: DOSE WAS INCREASED APPROXIMATELY ONE MONTH AGO
  2. CARBIDOPA AND LEVODOPA [Suspect]
     Active Substance: CARBIDOPA\LEVODOPA
     Dosage: 12.5 CARBIDOPA LEVODOPA TABLETS PER DAY

REACTIONS (3)
  - Product prescribing error [Unknown]
  - Seizure [Unknown]
  - Gait disturbance [Unknown]
